FAERS Safety Report 8348075-1 (Version None)
Quarter: 2012Q2

REPORT INFORMATION
  Report Type: 
  Country: None (occurrence: None)
  Receive Date: 20120509
  Receipt Date: 20120502
  Transmission Date: 20120825
  Serious: Yes (Hospitalization, Other)
  Sender: FDA-Public Use
  Company Number: US-BAYER-2011-101027

PATIENT
  Age: 22 Year
  Sex: Female
  Weight: 49.887 kg

DRUGS (2)
  1. YAZ [Suspect]
     Dosage: UNK
     Dates: start: 20080221
  2. IRON SULFATETHIAMIN COMPOUND TAB [Concomitant]

REACTIONS (14)
  - PAIN [None]
  - THROMBOSIS [None]
  - CEREBROVASCULAR ACCIDENT [None]
  - EMOTIONAL DISTRESS [None]
  - FEAR [None]
  - HEMIPLEGIA [None]
  - ATRIAL SEPTAL DEFECT [None]
  - SCAR [None]
  - PSYCHOLOGICAL TRAUMA [None]
  - INJURY [None]
  - ANXIETY [None]
  - MENTAL DISORDER [None]
  - ANHEDONIA [None]
  - APHASIA [None]
